FAERS Safety Report 4597262-7 (Version None)
Quarter: 2005Q1

REPORT INFORMATION
  Report Type: 
  Country: None (occurrence: None)
  Receive Date: 20050301
  Receipt Date: 20050214
  Transmission Date: 20050727
  Serious: Yes (Death, Life-Threatening)
  Sender: FDA-Public Use
  Company Number: TNZFR200500013

PATIENT
  Age: 80 Year
  Sex: Female

DRUGS (6)
  1. INNOHEP [Suspect]
     Indication: PULMONARY EMBOLISM
     Dosage: (14000 IU, ONCE DAILY), SUBCUTANEOUS
     Route: 058
     Dates: start: 20040917, end: 20040928
  2. CORDARONE [Concomitant]
  3. CIPROFLOXACIN HCL [Concomitant]
  4. TIENAM (PRIMAXIN) [Concomitant]
  5. NEURONTIN [Concomitant]
  6. PAROXETINE HCL [Concomitant]

REACTIONS (7)
  - ACTIVATED PARTIAL THROMBOPLASTIN TIME PROLONGED [None]
  - CARDIAC ARREST [None]
  - CONVULSION [None]
  - OVERDOSE [None]
  - PLATELET COUNT INCREASED [None]
  - PULMONARY EMBOLISM [None]
  - SUBDURAL HAEMATOMA [None]
